FAERS Safety Report 10891196 (Version 2)
Quarter: 2016Q2

REPORT INFORMATION
  Report Type: Spontaneous
  Country: US (occurrence: US)
  Receive Date: 20150306
  Receipt Date: 20160615
  Transmission Date: 20160815
  Serious: No
  Sender: FDA-Public Use
  Company Number: US-009507513-1502USA011201

PATIENT
  Sex: Male

DRUGS (1)
  1. BELSOMRA [Suspect]
     Active Substance: SUVOREXANT
     Indication: INSOMNIA
     Dosage: 5 MG, QD
     Route: 048

REACTIONS (4)
  - Gait disturbance [Unknown]
  - Insomnia [Unknown]
  - Laziness [Unknown]
  - Speech disorder [Unknown]

NARRATIVE: CASE EVENT DATE: 20150210
